FAERS Safety Report 10950993 (Version 2)
Quarter: 2015Q2

REPORT INFORMATION
  Report Type: Spontaneous
  Country: US (occurrence: US)
  Receive Date: 20150324
  Receipt Date: 20150403
  Transmission Date: 20150821
  Serious: Yes (Other)
  Sender: FDA-Public Use
  Company Number: US-PFIZER INC-2015102019

PATIENT
  Age: 27 Year
  Sex: Male

DRUGS (11)
  1. PHENYTOIN. [Suspect]
     Active Substance: PHENYTOIN
     Dosage: 200 MG PER DAY
  2. PHENOBARBITAL. [Concomitant]
     Active Substance: PHENOBARBITAL
     Dosage: 90 MG PER DAY,
  3. PHENYTOIN. [Suspect]
     Active Substance: PHENYTOIN
     Dosage: 100 MG PER DAY
  4. PHENYTOIN. [Suspect]
     Active Substance: PHENYTOIN
     Dosage: 100 MG PER DAY
  5. PHENYTOIN. [Suspect]
     Active Substance: PHENYTOIN
     Dosage: 100 MG ALTERNATING WITH 200 MG EVERY OTHER DAY
  6. PHENYTOIN. [Suspect]
     Active Substance: PHENYTOIN
     Dosage: 25 MG, 2X/DAY
  7. PHENYTOIN. [Suspect]
     Active Substance: PHENYTOIN
     Dosage: 300 MG PER DAY
  8. PHENYTOIN. [Suspect]
     Active Substance: PHENYTOIN
     Dosage: 200 MG PER DAY
  9. PHENYTOIN. [Suspect]
     Active Substance: PHENYTOIN
     Dosage: 300 MG PER DAY
  10. PHENYTOIN. [Suspect]
     Active Substance: PHENYTOIN
     Dosage: 100 MG PER DAY
  11. PHENYTOIN. [Suspect]
     Active Substance: PHENYTOIN
     Dosage: 200 MG PER DAY

REACTIONS (2)
  - Anticonvulsant drug level increased [Unknown]
  - Neurodegenerative disorder [Unknown]
